FAERS Safety Report 4350153-9 (Version None)
Quarter: 2004Q2

REPORT INFORMATION
  Report Type: 
  Country: None (occurrence: None)
  Receive Date: 20040429
  Receipt Date: 20040421
  Transmission Date: 20050107
  Serious: Yes (Hospitalization)
  Sender: FDA-Public Use
  Company Number: US-BRISTOL-MYERS SQUIBB COMPANY-12568515

PATIENT
  Age: 48 Year
  Sex: Female
  Weight: 67 kg

DRUGS (7)
  1. SERZONE [Suspect]
     Route: 048
     Dates: start: 19981120, end: 19990401
  2. REMERON [Concomitant]
  3. BUSPAR [Concomitant]
     Indication: ANXIETY
  4. PRINIVIL [Concomitant]
  5. LASIX [Concomitant]
  6. GLUCOPHAGE [Concomitant]
  7. DARVOCET [Concomitant]

REACTIONS (1)
  - HEPATITIS ALCOHOLIC [None]
